FAERS Safety Report 17188191 (Version 1)
Quarter: 2019Q4

REPORT INFORMATION
  Report Type: Spontaneous
  Country: US (occurrence: US)
  Receive Date: 20191221
  Receipt Date: 20191221
  Transmission Date: 20200122
  Serious: No
  Sender: FDA-Public Use
  Company Number: US-009507513-1912USA009957

PATIENT
  Age: 27 Year
  Sex: Male
  Weight: 57 kg

DRUGS (2)
  1. BRIDION [Suspect]
     Active Substance: SUGAMMADEX
     Indication: NEUROMUSCULAR BLOCKADE REVERSAL
     Dosage: 3.3 MILLIGRAM/KILOGRAM, ADMINISTERED 78 MIN AFTER ROCURONIUM
  2. ROCURONIUM BROMIDE. [Concomitant]
     Active Substance: ROCURONIUM BROMIDE
     Indication: ENDOTRACHEAL INTUBATION
     Dosage: 310 MILLIGRAM

REACTIONS (1)
  - Contraindicated product administered [Unknown]
